FAERS Safety Report 24916318 (Version 1)
Quarter: 2025Q1

REPORT INFORMATION
  Report Type: Spontaneous
  Country: US (occurrence: None)
  Receive Date: 20250131
  Receipt Date: 20250131
  Transmission Date: 20250408
  Serious: Yes (Death)
  Sender: FDA-CTU
  Company Number: None

PATIENT
  Age: 62 Year
  Sex: Male

DRUGS (2)
  1. DROXIDOPA [Suspect]
     Active Substance: DROXIDOPA
     Indication: Orthostatic hypotension
     Dosage: 100MG 3 TIMES DAILY BY MOUTH?
     Route: 048
     Dates: start: 202408
  2. TOBRAMfCIN INH SOLN 4MLAMP [Concomitant]

REACTIONS (2)
  - Septic shock [None]
  - Pneumonia [None]

NARRATIVE: CASE EVENT DATE: 20250122
